FAERS Safety Report 23192935 (Version 4)
Quarter: 2023Q4

REPORT INFORMATION
  Report Type: Other
  Country: US (occurrence: US)
  Receive Date: 20231116
  Receipt Date: 20231224
  Transmission Date: 20240109
  Serious: No
  Sender: FDA-Public Use
  Company Number: US-TRAVERE-2023TVT00649

PATIENT
  Age: 59 Year
  Sex: Male
  Weight: 101.2 kg

DRUGS (5)
  1. FILSPARI [Suspect]
     Active Substance: SPARSENTAN
     Indication: IgA nephropathy
     Dosage: 200 MG
     Route: 048
     Dates: start: 20231018
  2. FILSPARI [Suspect]
     Active Substance: SPARSENTAN
     Dosage: 200 MG
     Route: 048
     Dates: start: 202310
  3. SIMPONI [Concomitant]
     Active Substance: GOLIMUMAB
  4. TYLENOL EX-STR 500 MG CAPLET [Concomitant]
  5. LIPITOR [Concomitant]
     Active Substance: ATORVASTATIN CALCIUM

REACTIONS (7)
  - Diarrhoea [None]
  - Urine abnormality [Unknown]
  - Flatulence [Unknown]
  - Faeces discoloured [Unknown]
  - Back pain [None]
  - Faeces soft [None]
  - Anxiety [Unknown]

NARRATIVE: CASE EVENT DATE: 20231018
